FAERS Safety Report 8922601 (Version 1)
Quarter: 2012Q4

REPORT INFORMATION
  Report Type: Report from Study
  Country: JP (occurrence: JP)
  Receive Date: 20121123
  Receipt Date: 20121123
  Transmission Date: 20130627
  Serious: Yes (Other)
  Sender: FDA-Public Use
  Company Number: JP-ROCHE-1153808

PATIENT
  Sex: Female
  Weight: 21 kg

DRUGS (28)
  1. TOCILIZUMAB [Suspect]
     Indication: JUVENILE ARTHRITIS
     Route: 041
     Dates: start: 20101225, end: 20110118
  2. TOCILIZUMAB [Suspect]
     Indication: JUVENILE ARTHRITIS
     Route: 041
     Dates: start: 20110126, end: 20110223
  3. TOCILIZUMAB [Suspect]
     Indication: JUVENILE ARTHRITIS
     Route: 041
     Dates: start: 20110309, end: 20110420
  4. TOCILIZUMAB [Suspect]
     Indication: JUVENILE ARTHRITIS
     Route: 041
     Dates: start: 20110430, end: 20110430
  5. TOCILIZUMAB [Suspect]
     Indication: JUVENILE ARTHRITIS
     Route: 041
     Dates: start: 20110506, end: 20110506
  6. TOCILIZUMAB [Suspect]
     Indication: JUVENILE ARTHRITIS
     Route: 041
     Dates: start: 20110514, end: 20110617
  7. TOCILIZUMAB [Suspect]
     Indication: JUVENILE ARTHRITIS
     Route: 041
     Dates: start: 20110713, end: 20110831
  8. TOCILIZUMAB [Suspect]
     Indication: JUVENILE ARTHRITIS
     Route: 041
     Dates: start: 20110928, end: 20111005
  9. TOCILIZUMAB [Suspect]
     Indication: JUVENILE ARTHRITIS
     Dosage: Dosage is uncertain.
     Route: 041
     Dates: start: 20111031
  10. METHYLPREDNISOLONE SODIUM SUCCINATE [Concomitant]
     Indication: JUVENILE ARTHRITIS
     Route: 042
     Dates: start: 20101215, end: 20101217
  11. METHYLPREDNISOLONE SODIUM SUCCINATE [Concomitant]
     Indication: JUVENILE ARTHRITIS
     Route: 042
     Dates: start: 20101222, end: 20101224
  12. PREDNISOLONE [Concomitant]
     Indication: JUVENILE ARTHRITIS
     Route: 048
     Dates: start: 20101210, end: 20101228
  13. PREDNISOLONE [Concomitant]
     Indication: JUVENILE ARTHRITIS
     Route: 048
     Dates: start: 20101229, end: 20110104
  14. PREDNISOLONE [Concomitant]
     Indication: JUVENILE ARTHRITIS
     Route: 048
     Dates: start: 20110105, end: 20110201
  15. PREDNISOLONE [Concomitant]
     Indication: JUVENILE ARTHRITIS
     Route: 048
     Dates: start: 20110202, end: 20110222
  16. PREDNISOLONE [Concomitant]
     Indication: JUVENILE ARTHRITIS
     Route: 048
     Dates: start: 20110223, end: 20110309
  17. PREDNISOLONE [Concomitant]
     Indication: JUVENILE ARTHRITIS
     Route: 048
     Dates: start: 20110310, end: 20110629
  18. PREDNISOLONE [Concomitant]
     Indication: JUVENILE ARTHRITIS
     Route: 048
     Dates: start: 20110707, end: 20110726
  19. PREDNISOLONE [Concomitant]
     Indication: JUVENILE ARTHRITIS
     Route: 048
     Dates: start: 20110727, end: 20110816
  20. PREDNISOLONE [Concomitant]
     Indication: JUVENILE ARTHRITIS
     Route: 048
     Dates: start: 20110817, end: 20110830
  21. PREDNISOLONE [Concomitant]
     Indication: JUVENILE ARTHRITIS
     Route: 048
     Dates: start: 20110831, end: 20111209
  22. PREDNISOLONE [Concomitant]
     Indication: JUVENILE ARTHRITIS
     Route: 048
     Dates: start: 20111210, end: 20111227
  23. PREDNISOLONE [Concomitant]
     Indication: JUVENILE ARTHRITIS
     Route: 048
     Dates: start: 20111228
  24. PREDNISOLONE [Concomitant]
     Indication: JUVENILE ARTHRITIS
     Route: 048
     Dates: start: 20111221
  25. FUNGIZONE [Concomitant]
     Indication: PROPHYLAXIS
     Route: 048
     Dates: start: 20101210
  26. NAIXAN [Concomitant]
     Indication: JUVENILE ARTHRITIS
     Route: 048
  27. ALFAROL [Concomitant]
     Indication: JUVENILE ARTHRITIS
     Route: 048
     Dates: start: 20110521, end: 20110616
  28. ALFAROL [Concomitant]
     Route: 048
     Dates: start: 20110617, end: 20110913

REACTIONS (1)
  - Arthritis [Unknown]
